FAERS Safety Report 22751300 (Version 2)
Quarter: 2023Q4

REPORT INFORMATION
  Report Type: Spontaneous
  Country: US (occurrence: US)
  Receive Date: 20230726
  Receipt Date: 20231021
  Transmission Date: 20240110
  Serious: No
  Sender: FDA-Public Use
  Company Number: US-SA-SAC20230725001402

PATIENT
  Age: 58 Year
  Sex: Female

DRUGS (1)
  1. DUPIXENT [Suspect]
     Active Substance: DUPILUMAB
     Dosage: 300 MG, QOW
     Route: 058
     Dates: start: 20230827

REACTIONS (5)
  - Eye discharge [Unknown]
  - Eyelid margin crusting [Unknown]
  - Dry eye [Unknown]
  - Eye operation [Unknown]
  - Drug ineffective [Unknown]
